FAERS Safety Report 5742739-1 (Version None)
Quarter: 2008Q2

REPORT INFORMATION
  Report Type: 
  Country: None (occurrence: None)
  Receive Date: 20080515
  Receipt Date: 20080515
  Transmission Date: 20081010
  Serious: No
  Sender: FDA-Public Use
  Company Number: None

PATIENT
  Age: 19 Year
  Sex: Female
  Weight: 96.1626 kg

DRUGS (1)
  1. EFFEXOR [Suspect]
     Indication: DEPRESSION
     Dosage: 37.5 TWO BID PO
     Route: 048
     Dates: start: 20080430, end: 20080514

REACTIONS (3)
  - ABDOMINAL PAIN [None]
  - DRUG INTOLERANCE [None]
  - VOMITING [None]
